FAERS Safety Report 16123390 (Version 1)
Quarter: 2019Q1

REPORT INFORMATION
  Report Type: Spontaneous
  Country: US (occurrence: US)
  Receive Date: 20190327
  Receipt Date: 20190327
  Transmission Date: 20190418
  Serious: Yes (Hospitalization)
  Sender: FDA-Public Use
  Company Number: US-VERTEX PHARMACEUTICALS-2019-002488

PATIENT
  Sex: Female

DRUGS (13)
  1. AMOXYCILLIN                        /00249601/ [Concomitant]
     Active Substance: AMOXICILLIN
  2. PULMOZYME [Concomitant]
     Active Substance: DORNASE ALFA
  3. BACTRIM [Concomitant]
     Active Substance: SULFAMETHOXAZOLE\TRIMETHOPRIM
  4. SUCRALFATE. [Concomitant]
     Active Substance: SUCRALFATE
  5. OMEPRAZOLE. [Concomitant]
     Active Substance: OMEPRAZOLE
  6. SYMDEKO [Suspect]
     Active Substance: IVACAFTOR\TEZACAFTOR
     Indication: CYSTIC FIBROSIS
     Dosage: 100MG TEZACAFTOR/150MG IVACAFTOR AM; 150MG IVACAFTOR PM
     Route: 048
     Dates: start: 20180921
  7. METHADONE [Concomitant]
     Active Substance: METHADONE HYDROCHLORIDE
  8. PROAIR HFA [Concomitant]
     Active Substance: ALBUTEROL SULFATE
  9. CAYSTON [Concomitant]
     Active Substance: AZTREONAM
  10. ONDANSETRON [Concomitant]
     Active Substance: ONDANSETRON
  11. PHYTONADIONE. [Concomitant]
     Active Substance: PHYTONADIONE
  12. POLYETHYLENE GLYCOL [Concomitant]
     Active Substance: POLYETHYLENE GLYCOLS
  13. DOXYCYCLINE HCL [Concomitant]
     Active Substance: DOXYCYCLINE HYDROCHLORIDE

REACTIONS (1)
  - Cystic fibrosis [Unknown]

NARRATIVE: CASE EVENT DATE: 2019
